FAERS Safety Report 8356524-8 (Version None)
Quarter: 2012Q2

REPORT INFORMATION
  Report Type: 
  Country: None (occurrence: None)
  Receive Date: 20120514
  Receipt Date: 20120502
  Transmission Date: 20120825
  Serious: Yes (Other)
  Sender: FDA-Public Use
  Company Number: PHHY2012IL027876

PATIENT
  Age: 38 Year
  Sex: Female

DRUGS (1)
  1. SANDOSTATIN LAR [Suspect]
     Indication: ACROMEGALY
     Dosage: 40 MG, EVERY 4 WEEKS
     Dates: start: 20070826, end: 20120312

REACTIONS (2)
  - FOETAL MALFORMATION [None]
  - MATERNAL EXPOSURE TIMING UNSPECIFIED [None]
